FAERS Safety Report 7238724-3 (Version None)
Quarter: 2011Q1

REPORT INFORMATION
  Report Type: 
  Country: None (occurrence: None)
  Receive Date: 20110121
  Receipt Date: 20110112
  Transmission Date: 20110831
  Serious: Yes (Hospitalization)
  Sender: FDA-Public Use
  Company Number: US-ASTRAZENECA-2011SE02155

PATIENT
  Age: 60 Year
  Sex: Female

DRUGS (4)
  1. SEROQUEL [Suspect]
     Dosage: DAILY
     Route: 048
  2. SEROQUEL [Suspect]
     Indication: BIPOLAR DISORDER
     Route: 048
     Dates: end: 20100301
  3. BLOOD PRESSURE MEDICINE [Concomitant]
  4. SEROQUEL [Suspect]
     Route: 048
     Dates: start: 20100101

REACTIONS (4)
  - DRUG DOSE OMISSION [None]
  - ANXIETY [None]
  - INCORRECT DOSE ADMINISTERED [None]
  - IRRITABILITY [None]
